FAERS Safety Report 23766622 (Version 1)
Quarter: 2024Q2

REPORT INFORMATION
  Report Type: Spontaneous
  Country: US (occurrence: US)
  Receive Date: 20240422
  Receipt Date: 20240422
  Transmission Date: 20240716
  Serious: Yes (Hospitalization)
  Sender: FDA-Public Use
  Company Number: US-002147023-NVSC2024US081671

PATIENT
  Sex: Female

DRUGS (3)
  1. DIOVAN [Suspect]
     Active Substance: VALSARTAN
     Indication: Nocturnal hypertension
     Dosage: 160 MG, QD (BEFORE BED TIME FOR 15 YEARS)
     Route: 048
  2. DIOVAN [Suspect]
     Active Substance: VALSARTAN
     Indication: Nocturnal hypertension
     Dosage: 80 MG
     Route: 048
  3. AMLODIPINE [Concomitant]
     Active Substance: AMLODIPINE BESYLATE
     Indication: Nocturnal hypertension
     Dosage: 10 MG
     Route: 065

REACTIONS (4)
  - Nocturnal hypertension [Unknown]
  - Blood pressure abnormal [Unknown]
  - Product availability issue [Unknown]
  - Product use issue [Unknown]
